FAERS Safety Report 9047059 (Version 1)
Quarter: 2013Q1

REPORT INFORMATION
  Report Type: Spontaneous
  Country: DE (occurrence: DE)
  Receive Date: 20130204
  Receipt Date: 20130204
  Transmission Date: 20140127
  Serious: Yes (Hospitalization)
  Sender: FDA-Public Use
  Company Number: PHHY2013DE009634

PATIENT
  Sex: Male

DRUGS (2)
  1. GLIVEC [Suspect]
     Indication: GLIOBLASTOMA
     Dosage: 400 MG, DAILY
     Route: 048
     Dates: start: 2003
  2. LITALIR [Concomitant]

REACTIONS (4)
  - Central nervous system infection [Not Recovered/Not Resolved]
  - Hemiplegia [Not Recovered/Not Resolved]
  - Headache [Not Recovered/Not Resolved]
  - Asthenia [Not Recovered/Not Resolved]
